FAERS Safety Report 24323826 (Version 1)
Quarter: 2024Q3

REPORT INFORMATION
  Report Type: Spontaneous
  Country: US (occurrence: None)
  Receive Date: 20240916
  Receipt Date: 20240916
  Transmission Date: 20241017
  Serious: No
  Sender: Public
  Company Number: None

PATIENT
  Age: 47 Year
  Sex: Female

DRUGS (1)
  1. OPZELURA [Suspect]
     Active Substance: RUXOLITINIB PHOSPHATE
     Indication: Vitiligo
     Dosage: APPLY A THIN LAYER TO FOREHEAD BOTH FOREARMS NECK TO AFFECTED AREA(S) TWICE DAILY AS?
     Dates: start: 202408

REACTIONS (2)
  - Application site pruritus [None]
  - Application site burn [None]
